FAERS Safety Report 7575196-3 (Version None)
Quarter: 2011Q2

REPORT INFORMATION
  Report Type: 
  Country: None (occurrence: None)
  Receive Date: 20110627
  Receipt Date: 20110614
  Transmission Date: 20111010
  Serious: Yes (Hospitalization, Other)
  Sender: FDA-Public Use
  Company Number: US-ELI_LILLY_AND_COMPANY-US201011004599

PATIENT
  Sex: Female
  Weight: 36.735 kg

DRUGS (13)
  1. LISINOPRIL [Concomitant]
  2. METOPROLOL TARTRATE [Concomitant]
     Dosage: 25 MG, UNKNOWN
  3. FORTEO [Suspect]
     Dosage: 20 UG, DAILY (1/D)
     Route: 058
  4. OMEPRAZOLE [Concomitant]
  5. MULTI-VITAMIN [Concomitant]
  6. PRAVASTATIN SODIUM [Concomitant]
  7. CALCIUM CARBONATE [Concomitant]
     Dosage: UNK
  8. FORTEO [Suspect]
     Dosage: 20 UG, DAILY (1/D)
     Route: 058
  9. IMODIUM [Concomitant]
  10. FORTEO [Suspect]
     Dosage: 20 UG, QD
     Route: 058
  11. CALCIUM CARBONATE [Concomitant]
     Dosage: 600 MG, UNKNOWN
  12. FERREX [Concomitant]
  13. FORTEO [Suspect]
     Indication: OSTEOPOROSIS
     Dosage: 20 UG, DAILY (1/D)
     Route: 058
     Dates: start: 20101030

REACTIONS (9)
  - INJECTION SITE HAEMATOMA [None]
  - MALAISE [None]
  - CONTUSION [None]
  - FALL [None]
  - HIP FRACTURE [None]
  - GAIT DISTURBANCE [None]
  - PAIN [None]
  - MUSCLE SPASMS [None]
  - DRUG INEFFECTIVE [None]
